FAERS Safety Report 4733890-3 (Version None)
Quarter: 2005Q3

REPORT INFORMATION
  Report Type: 
  Country: None (occurrence: None)
  Receive Date: 20050803
  Receipt Date: 20050727
  Transmission Date: 20060218
  Serious: Yes (Hospitalization)
  Sender: FDA-Public Use
  Company Number: JP-MERCK-0508USA00033

PATIENT
  Age: 38 Year
  Sex: Male

DRUGS (6)
  1. PRIMAXIN [Suspect]
     Indication: PYREXIA
     Route: 041
     Dates: start: 20050721, end: 20050722
  2. PRIMAXIN [Suspect]
     Indication: INFECTION
     Route: 041
     Dates: start: 20050721, end: 20050722
  3. FIRSTCIN [Suspect]
     Indication: PYREXIA
     Route: 042
     Dates: start: 20050719, end: 20050720
  4. FIRSTCIN [Suspect]
     Indication: INFECTION
     Route: 042
     Dates: start: 20050719, end: 20050720
  5. LOXONIN [Concomitant]
     Indication: PAIN
     Route: 048
     Dates: start: 20050723
  6. MUCOSTA [Concomitant]
     Route: 048

REACTIONS (5)
  - ALANINE AMINOTRANSFERASE INCREASED [None]
  - ASPARTATE AMINOTRANSFERASE INCREASED [None]
  - BLOOD BILIRUBIN INCREASED [None]
  - GAMMA-GLUTAMYLTRANSFERASE INCREASED [None]
  - LIVER DISORDER [None]
